FAERS Safety Report 6552937-5 (Version None)
Quarter: 2010Q1

REPORT INFORMATION
  Report Type: 
  Country: None (occurrence: None)
  Receive Date: 20100122
  Receipt Date: 20100107
  Transmission Date: 20100710
  Serious: Yes (Hospitalization, Other)
  Sender: FDA-Public Use
  Company Number: 2010-00029

PATIENT
  Age: 9 Year
  Sex: Male

DRUGS (6)
  1. LAMOTRIGINE [Suspect]
     Indication: EPILEPSY
     Dosage: , 1 D;
  2. VALPROATE SODIUM [Suspect]
     Indication: EPILEPSY
     Dosage: , 1 D; AFTER THE THIRD ADMISSION
  3. CLOBAZAM [Suspect]
     Indication: EPILEPSY
     Dosage: , 1 D;
  4. ETHOSUXIMIDE [Suspect]
     Indication: EPILEPSY
     Dosage: ,1 D;
  5. LEVETIRACETAM [Concomitant]
  6. PREDNISOLONE [Concomitant]

REACTIONS (21)
  - AREFLEXIA [None]
  - BLISTER [None]
  - BRADYCARDIA [None]
  - BRAIN STEM SYNDROME [None]
  - DEPRESSED LEVEL OF CONSCIOUSNESS [None]
  - EYELID DISORDER [None]
  - GENERALISED OEDEMA [None]
  - HEPATIC FUNCTION ABNORMAL [None]
  - HYPOTENSION [None]
  - HYPOXIA [None]
  - KLEBSIELLA INFECTION [None]
  - LETHARGY [None]
  - LOWER RESPIRATORY TRACT INFECTION [None]
  - NECROSIS [None]
  - OEDEMA [None]
  - OEDEMA PERIPHERAL [None]
  - RESPIRATORY DISORDER [None]
  - SOMNOLENCE [None]
  - STRIDOR [None]
  - SWEAT GLAND DISORDER [None]
  - SWELLING FACE [None]
